FAERS Safety Report 7629456-8 (Version None)
Quarter: 2011Q3

REPORT INFORMATION
  Report Type: 
  Country: None (occurrence: None)
  Receive Date: 20110718
  Receipt Date: 20110630
  Transmission Date: 20111222
  Serious: Yes (Other)
  Sender: FDA-Public Use
  Company Number: 2011P1007681

PATIENT
  Age: 79 Year
  Sex: Female

DRUGS (4)
  1. LYDERM CREAM 0.05% (NO PREF. NAME) [Suspect]
     Indication: JOINT SWELLING
     Dosage: TOP;SPARINGLY,BID
     Route: 061
     Dates: start: 20110601, end: 20110601
  2. LYDERM CREAM 0.05% (NO PREF. NAME) [Suspect]
     Indication: RASH
     Dosage: TOP;SPARINGLY,BID
     Route: 061
     Dates: start: 20110601, end: 20110601
  3. MUPIROCIN [Suspect]
     Indication: WOUND
     Dosage: TOP
     Route: 061
  4. LEVOTHYROXINE SODIUM [Concomitant]

REACTIONS (7)
  - ARTHROPOD BITE [None]
  - INFLAMMATION [None]
  - DRUG INTERACTION [None]
  - ARTHROPOD STING [None]
  - LIP SWELLING [None]
  - RASH PUSTULAR [None]
  - SKIN EXFOLIATION [None]
